FAERS Safety Report 24200806 (Version 1)
Quarter: 2024Q3

REPORT INFORMATION
  Report Type: Spontaneous
  Country: US (occurrence: None)
  Receive Date: 20240810
  Receipt Date: 20240810
  Transmission Date: 20241017
  Serious: No
  Sender: Public
  Company Number: None

PATIENT
  Age: 38 Year
  Sex: Female
  Weight: 69.75 kg

DRUGS (1)
  1. SEMAGLUTIDE [Suspect]
     Active Substance: SEMAGLUTIDE
     Indication: Weight decreased
     Dosage: OTHER QUANTITY : 1 INJECTION(S);?OTHER FREQUENCY : ONCE A WEEK;?OTHER ROUTE : SUBCUTANEOUS INJECTION
     Route: 050
     Dates: start: 20240724, end: 20240724

REACTIONS (3)
  - Anxiety [None]
  - Anger [None]
  - Aphasia [None]

NARRATIVE: CASE EVENT DATE: 20240726
